FAERS Safety Report 8830226 (Version 1)
Quarter: 2012Q4

REPORT INFORMATION
  Report Type: 
  Country: US (occurrence: US)
  Receive Date: 20121008
  Receipt Date: 20121008
  Transmission Date: 20130627
  Serious: No
  Sender: FDA-Public Use
  Company Number: US-VERTEX PHARMACEUTICAL INC.-2012-021602

PATIENT
  Age: 61 None
  Sex: Female
  Weight: 67 kg

DRUGS (5)
  1. INCIVEK [Suspect]
     Indication: HEPATITIS C
     Dosage: 750 mg, tid
     Route: 048
     Dates: start: 20120907
  2. RIBAVIRIN [Suspect]
     Indication: HEPATITIS C
     Dosage: 600 mg in am + 400 in pm
     Dates: start: 20120907
  3. PEGASYS [Suspect]
     Indication: HEPATITIS C
     Dosage: 180 ?g, UNK
     Route: 058
     Dates: start: 20120907
  4. LEVOTHYROXINE [Concomitant]
     Dosage: .75 ?g, qd
  5. PREVASTATIN [Concomitant]
     Dosage: 400 g, qd

REACTIONS (2)
  - Incorrect dose administered [Recovered/Resolved]
  - Rash pruritic [Not Recovered/Not Resolved]
